FAERS Safety Report 7508883-3 (Version None)
Quarter: 2011Q2

REPORT INFORMATION
  Report Type: 
  Country: None (occurrence: None)
  Receive Date: 20110527
  Receipt Date: 20110523
  Transmission Date: 20111010
  Serious: Yes (Death, Other)
  Sender: FDA-Public Use
  Company Number: PHHY2011US19586

PATIENT
  Sex: Male
  Weight: 75 kg

DRUGS (1)
  1. EXJADE [Suspect]
     Indication: NEOPLASM
     Dosage: 250 MG, DAILY
     Route: 048
     Dates: start: 20100501, end: 20101201

REACTIONS (3)
  - PNEUMONIA [None]
  - SEPSIS [None]
  - RENAL DISORDER [None]
